FAERS Safety Report 6520296-X (Version None)
Quarter: 2009Q4

REPORT INFORMATION
  Report Type: 
  Country: None (occurrence: None)
  Receive Date: 20091229
  Receipt Date: 20091218
  Transmission Date: 20100525
  Serious: Yes (Other)
  Sender: FDA-Public Use
  Company Number: SG-PFIZER INC-2009312854

PATIENT
  Age: 22 Year
  Sex: Female

DRUGS (1)
  1. DEPO-PROVERA [Suspect]
     Dosage: UNK

REACTIONS (1)
  - DERMATITIS BULLOUS [None]
